FAERS Safety Report 17470985 (Version 1)
Quarter: 2020Q1

REPORT INFORMATION
  Report Type: Report from Study
  Country: MX (occurrence: MX)
  Receive Date: 20200227
  Receipt Date: 20200227
  Transmission Date: 20200409
  Serious: Yes (Other)
  Sender: FDA-Public Use
  Company Number: NVSC2020MX055603

PATIENT
  Sex: Female
  Weight: 55 kg

DRUGS (2)
  1. SIMBRINZA [Suspect]
     Active Substance: BRIMONIDINE TARTRATE\BRINZOLAMIDE
     Indication: GLAUCOMA
     Dosage: 2 DF, BID
     Route: 047
     Dates: start: 2016, end: 20170620
  2. SIMBRINZA [Suspect]
     Active Substance: BRIMONIDINE TARTRATE\BRINZOLAMIDE
     Dosage: 2 DF, BID
     Route: 047
     Dates: start: 2016

REACTIONS (4)
  - Visual impairment [Unknown]
  - Product use in unapproved indication [Unknown]
  - Fall [Unknown]
  - Spinal deformity [Unknown]
